FAERS Safety Report 9514503 (Version 1)
Quarter: 2013Q3

REPORT INFORMATION
  Report Type: Report from Study
  Country: US (occurrence: US)
  Receive Date: 20130911
  Receipt Date: 20130911
  Transmission Date: 20140515
  Serious: Yes (Hospitalization)
  Sender: FDA-Public Use
  Company Number: US-ROCHE-1272387

PATIENT
  Age: 69 Year
  Sex: Female

DRUGS (2)
  1. AVASTIN [Suspect]
     Indication: COLORECTAL CANCER
     Route: 042
     Dates: start: 20130101, end: 20130201
  2. 5-FLUOROURACIL [Concomitant]
     Route: 065

REACTIONS (2)
  - Haemorrhagic stroke [Not Recovered/Not Resolved]
  - Coma [Not Recovered/Not Resolved]
